FAERS Safety Report 14823552 (Version 1)
Quarter: 2018Q2

REPORT INFORMATION
  Report Type: Report from Study
  Country: DE (occurrence: DE)
  Receive Date: 20180428
  Receipt Date: 20180428
  Transmission Date: 20180711
  Serious: Yes (Death)
  Sender: FDA-Public Use
  Company Number: DE-ROCHE-2084281

PATIENT
  Age: 78 Year
  Sex: Female

DRUGS (3)
  1. BEVACIZUMAB. [Suspect]
     Active Substance: BEVACIZUMAB
     Indication: BREAST CANCER
     Route: 065
     Dates: start: 20101230, end: 20110804
  2. BEVACIZUMAB. [Suspect]
     Active Substance: BEVACIZUMAB
     Route: 042
     Dates: start: 20110307, end: 20110307
  3. PACLITAXEL. [Concomitant]
     Active Substance: PACLITAXEL
     Indication: BREAST CANCER
     Dosage: 30/DEC/2010,06/JAN/2011, 28/JAN/2011, 04/FEB/2011, 18/FEB/2011,25/FEB/2011, 07/MAR/2011, 12/APR/2011
     Route: 065
     Dates: start: 20101221

REACTIONS (3)
  - Blood creatinine abnormal [Unknown]
  - Nephritis [Fatal]
  - Renal failure [Fatal]

NARRATIVE: CASE EVENT DATE: 20110407
